FAERS Safety Report 8959050 (Version 1)
Quarter: 2012Q4

REPORT INFORMATION
  Report Type: 
  Country: DE (occurrence: DE)
  Receive Date: 20121212
  Receipt Date: 20121212
  Transmission Date: 20130627
  Serious: Yes (Hospitalization, Congenital Anomaly)
  Sender: FDA-Public Use
  Company Number: PHHY2012DE101769

PATIENT
  Age: 10 Month
  Sex: Female
  Weight: 2.94 kg

DRUGS (5)
  1. SANDIMMUN OPTORAL [Suspect]
     Indication: HEART TRANSPLANT
     Dosage: 30 mg, daily
     Route: 048
     Dates: start: 20120201
  2. CERTICAN [Suspect]
     Indication: HEART TRANSPLANT
     Dosage: 0.5 mg, per day
     Route: 048
     Dates: start: 20120201
  3. PREDNISOLON [Concomitant]
     Indication: HEART TRANSPLANT
     Dosage: 0.5 mg, per day
     Dates: start: 20120201
  4. ENALAPRIL [Concomitant]
     Indication: HEART TRANSPLANT
     Dosage: 1 mg, per day
     Route: 048
     Dates: start: 20120201
  5. OMEPRAZOL ^ACYFABRIK^ [Concomitant]
     Indication: HEART TRANSPLANT
     Dosage: 5 mg, per day
     Route: 048
     Dates: start: 20120201

REACTIONS (2)
  - Weight gain poor [Recovering/Resolving]
  - Vomiting [Recovering/Resolving]
